FAERS Safety Report 15279471 (Version 4)
Quarter: 2018Q4

REPORT INFORMATION
  Report Type: Spontaneous
  Country: JP (occurrence: JP)
  Receive Date: 20180815
  Receipt Date: 20181114
  Transmission Date: 20190204
  Serious: Yes (Life-Threatening, Hospitalization)
  Sender: FDA-Public Use
  Company Number: JP-ROCHE-2140861

PATIENT
  Age: 71 Year
  Sex: Male
  Weight: 42 kg

DRUGS (15)
  1. DENOSINE (JAPAN) [Suspect]
     Active Substance: GANCICLOVIR
     Indication: CYTOMEGALOVIRUS INFECTION
     Dosage: AT A MAINTENANCE DOSE
     Route: 041
     Dates: start: 20180328, end: 20180403
  2. DENOSINE (JAPAN) [Suspect]
     Active Substance: GANCICLOVIR
     Dosage: REDUCTION IN DOSE, THEN TEMPORARILY STOPPED ON 15/APR/2018 DUE TO THE FEBRILE NEUTROPENIA
     Route: 041
     Dates: start: 20180412, end: 20180415
  3. VALIXA [Suspect]
     Active Substance: VALGANCICLOVIR
     Indication: CYTOMEGALOVIRUS INFECTION
     Route: 065
     Dates: end: 20180328
  4. PREDONINE [Concomitant]
     Active Substance: PREDNISOLONE
     Indication: NEUROSARCOIDOSIS
     Route: 048
  5. LIMAPROST ALFADEX [Concomitant]
     Active Substance: LIMAPROST
     Route: 048
  6. ONEALFA [Concomitant]
     Active Substance: ALFACALCIDOL
     Route: 048
     Dates: start: 20180329
  7. NAFTOPIDIL [Concomitant]
     Active Substance: NAFTOPIDIL
     Route: 048
     Dates: start: 20180329
  8. ALBUMIN [Concomitant]
     Active Substance: ALBUMIN HUMAN
     Indication: BLOOD ALBUMIN DECREASED
     Route: 041
     Dates: start: 20180425, end: 20180427
  9. DENOSINE (JAPAN) [Suspect]
     Active Substance: GANCICLOVIR
     Dosage: ENHANCED TO 200 MG ON 04/APR/2018
     Route: 041
     Dates: start: 20180404, end: 20180411
  10. DENOSINE (JAPAN) [Suspect]
     Active Substance: GANCICLOVIR
     Dosage: READMINISTERED?DISCONTINUED ON 10/JUN/2018 DUE TO BONE MARROW DEPRESSION
     Route: 041
     Dates: start: 20180508, end: 20180610
  11. CALCIUM LACTATE [Concomitant]
     Active Substance: CALCIUM LACTATE
     Route: 048
     Dates: start: 20111220
  12. METHYCOBAL [Concomitant]
     Active Substance: METHYLCOBALAMIN
     Route: 048
  13. LIMAPROST ALFADEX [Concomitant]
     Active Substance: LIMAPROST
     Route: 048
  14. LYRICA [Concomitant]
     Active Substance: PREGABALIN
     Route: 048
     Dates: start: 20180329
  15. BAKTAR [Concomitant]
     Active Substance: SULFAMETHOXAZOLE\TRIMETHOPRIM
     Route: 048

REACTIONS (3)
  - Ileus [Recovered/Resolved]
  - Bone marrow failure [Recovered/Resolved]
  - Febrile neutropenia [Recovered/Resolved]

NARRATIVE: CASE EVENT DATE: 20180415
